FAERS Safety Report 5013354-2 (Version None)
Quarter: 2006Q2

REPORT INFORMATION
  Report Type: 
  Country: None (occurrence: None)
  Receive Date: 20060530
  Receipt Date: 20060419
  Transmission Date: 20061013
  Serious: No
  Sender: FDA-Public Use
  Company Number: US-GLAXOSMITHKLINE-A0602443A

PATIENT
  Age: 56 Year
  Sex: Female

DRUGS (7)
  1. WELLBUTRIN XL [Suspect]
     Indication: DEPRESSION
     Dosage: 300MG PER DAY
     Route: 048
  2. ASACOL [Concomitant]
  3. CRESTOR [Concomitant]
  4. ALLEGRA [Concomitant]
  5. TYLENOL (GELTAB) [Concomitant]
  6. MULTIVITAMIN [Concomitant]
  7. ZOLOFT [Concomitant]

REACTIONS (3)
  - FEELING HOT [None]
  - FLUSHING [None]
  - HYPERHIDROSIS [None]
